FAERS Safety Report 9048907 (Version 4)
Quarter: 2014Q2

REPORT INFORMATION
  Report Type: Report from Study
  Country: JP (occurrence: JP)
  Receive Date: 20130204
  Receipt Date: 20140530
  Transmission Date: 20141212
  Serious: Yes (Death, Other)
  Sender: FDA-Public Use
  Company Number: JP-JNJFOC-20130108918

PATIENT
  Age: 65 Year
  Sex: Male

DRUGS (13)
  1. PREZISTA [Suspect]
     Indication: ACQUIRED IMMUNODEFICIENCY SYNDROME
     Route: 048
     Dates: start: 20090525, end: 201209
  2. TRUVADA [Suspect]
     Indication: ACQUIRED IMMUNODEFICIENCY SYNDROME
     Route: 048
     Dates: start: 20070312, end: 20100124
  3. KALETRA [Suspect]
     Indication: HIV INFECTION
     Route: 048
     Dates: start: 20120918, end: 201212
  4. ISENTRESS [Suspect]
     Indication: HIV INFECTION
     Route: 048
     Dates: start: 20120918, end: 201212
  5. NORVIR [Concomitant]
     Indication: ACQUIRED IMMUNODEFICIENCY SYNDROME
     Route: 048
     Dates: start: 20090525, end: 20110825
  6. EPZICOM [Concomitant]
     Indication: ACQUIRED IMMUNODEFICIENCY SYNDROME
     Route: 048
     Dates: start: 20100125, end: 201209
  7. GASTER [Concomitant]
     Indication: GASTROOESOPHAGEAL REFLUX DISEASE
     Route: 048
     Dates: start: 20100401, end: 20110401
  8. ALESION [Concomitant]
     Indication: RHINITIS ALLERGIC
     Route: 048
     Dates: start: 20100401, end: 20110401
  9. BUFFERIN [Concomitant]
     Indication: HYPERTENSION
     Route: 048
     Dates: start: 20100401, end: 201209
  10. AUGMENTIN [Concomitant]
     Indication: SUBCUTANEOUS ABSCESS
     Route: 048
     Dates: start: 20100401, end: 20110901
  11. PRIMPERAN [Concomitant]
     Indication: GASTROOESOPHAGEAL REFLUX DISEASE
     Route: 065
     Dates: start: 20100401, end: 201209
  12. NORVIR [Concomitant]
     Indication: HIV INFECTION
     Route: 048
     Dates: start: 20110826, end: 201209
  13. ZOPICLONE [Concomitant]
     Indication: INSOMNIA
     Route: 048
     Dates: start: 20120305, end: 201209

REACTIONS (3)
  - Blood urea increased [Recovered/Resolved]
  - Death [Fatal]
  - Nephrolithiasis [Not Recovered/Not Resolved]
